FAERS Safety Report 10375611 (Version 1)
Quarter: 2014Q3

REPORT INFORMATION
  Report Type: Spontaneous
  Country: US (occurrence: None)
  Receive Date: 20140804
  Receipt Date: 20140804
  Transmission Date: 20150326
  Serious: Yes (Other)
  Sender: FDA-Public Use
  Company Number: 1713747-2013-99910

PATIENT
  Age: 59 Year
  Sex: Female
  Weight: 86.5 kg

DRUGS (1)
  1. 0.9% SODIUM CHLORIDE [Suspect]
     Active Substance: SODIUM CHLORIDE
     Dates: start: 20130508

REACTIONS (4)
  - Left atrial dilatation [None]
  - Dyspnoea [None]
  - Chest pain [None]
  - Anxiety [None]

NARRATIVE: CASE EVENT DATE: 20130508
